FAERS Safety Report 15409073 (Version 3)
Quarter: 2018Q4

REPORT INFORMATION
  Report Type: Spontaneous
  Country: US (occurrence: US)
  Receive Date: 20180920
  Receipt Date: 20181231
  Transmission Date: 20190204
  Serious: No
  Sender: FDA-Public Use
  Company Number: US-BRISTOL-MYERS SQUIBB COMPANY-BMS-2018-085344

PATIENT
  Sex: Female
  Weight: 90.7 kg

DRUGS (1)
  1. ORENCIA [Suspect]
     Active Substance: ABATACEPT
     Indication: RHEUMATOID ARTHRITIS
     Dosage: 750 MG, WEEK 0, 2 AND 4
     Route: 042
     Dates: start: 201709

REACTIONS (6)
  - Headache [Unknown]
  - Fatigue [Unknown]
  - Cough [Unknown]
  - Condition aggravated [Unknown]
  - Influenza like illness [Unknown]
  - Sinusitis [Unknown]
